FAERS Safety Report 10729099 (Version 1)
Quarter: 2015Q1

REPORT INFORMATION
  Report Type: Spontaneous
  Country: US (occurrence: US)
  Receive Date: 20150122
  Receipt Date: 20150122
  Transmission Date: 20150721
  Serious: Yes (Death, Other)
  Sender: FDA-Public Use
  Company Number: US-GLAXOSMITHKLINE-US2015GSK002769

PATIENT
  Age: 53 Year
  Sex: Male

DRUGS (7)
  1. MIRTAZAPINE. [Suspect]
     Active Substance: MIRTAZAPINE
     Route: 048
  2. TRAZODONE [Suspect]
     Active Substance: TRAZODONE HYDROCHLORIDE
     Route: 048
  3. CODEINE [Suspect]
     Active Substance: CODEINE
     Route: 048
  4. DEXTROMETHORPHAN [Suspect]
     Active Substance: DEXTROMETHORPHAN
     Route: 048
  5. MORPHINE [Suspect]
     Active Substance: MORPHINE
     Route: 048
  6. DIAZEPAM. [Suspect]
     Active Substance: DIAZEPAM
     Route: 048
  7. BUPROPION [Suspect]
     Active Substance: BUPROPION
     Route: 048

REACTIONS (2)
  - Drug abuse [Fatal]
  - Death [Fatal]
